FAERS Safety Report 8381803-8 (Version None)
Quarter: 2012Q2

REPORT INFORMATION
  Report Type: 
  Country: None (occurrence: None)
  Receive Date: 20120522
  Receipt Date: 20120522
  Transmission Date: 20120825
  Serious: Yes (Disabling, Other)
  Sender: FDA-Public Use
  Company Number: None

PATIENT
  Age: 50 Year
  Sex: Male
  Weight: 81.6475 kg

DRUGS (1)
  1. PRAMIPEXOLE DIHYDROCHLORIDE [Suspect]
     Indication: RESTLESS LEGS SYNDROME
     Dosage: 1.5 MG NIGHTLY PO
     Route: 048
     Dates: start: 19980501, end: 20120421

REACTIONS (10)
  - ANXIETY [None]
  - SOCIAL AVOIDANT BEHAVIOUR [None]
  - BLINDNESS UNILATERAL [None]
  - EYE INJURY [None]
  - SOMNOLENCE [None]
  - OBSESSIVE-COMPULSIVE DISORDER [None]
  - PATHOLOGICAL GAMBLING [None]
  - ANHEDONIA [None]
  - DEPRESSION [None]
  - STRESS [None]
